FAERS Safety Report 13351995 (Version 1)
Quarter: 2017Q1

REPORT INFORMATION
  Report Type: Spontaneous
  Country: US (occurrence: US)
  Receive Date: 20170320
  Receipt Date: 20170320
  Transmission Date: 20170429
  Serious: No
  Sender: FDA-Public Use
  Company Number: US-SA-2016SA056144

PATIENT
  Age: 58 Year
  Sex: Male

DRUGS (1)
  1. NASACORT ALLERGY 24HR [Suspect]
     Active Substance: TRIAMCINOLONE ACETONIDE
     Indication: MULTIPLE ALLERGIES
     Dosage: DOSE: 120 SPRAY, 2 PUFFS DAILY.
     Route: 065
     Dates: end: 20160315

REACTIONS (3)
  - Epistaxis [Unknown]
  - Oropharyngeal pain [Unknown]
  - Drug ineffective [Unknown]
